FAERS Safety Report 20510065 (Version 2)
Quarter: 2023Q2

REPORT INFORMATION
  Report Type: Spontaneous
  Country: US (occurrence: US)
  Receive Date: 20220224
  Receipt Date: 20230413
  Transmission Date: 20230721
  Serious: No
  Sender: FDA-Public Use
  Company Number: US-drreddys-SPO/USA/22/0147031

PATIENT
  Sex: Female

DRUGS (3)
  1. DOANS EXTRA STRENGTH [Suspect]
     Active Substance: MAGNESIUM SALICYLATE
     Indication: Back pain
  2. DOANS EXTRA STRENGTH [Suspect]
     Active Substance: MAGNESIUM SALICYLATE
     Indication: Spinal stenosis
  3. DOANS EXTRA STRENGTH [Suspect]
     Active Substance: MAGNESIUM SALICYLATE
     Indication: Pain

REACTIONS (3)
  - Drug ineffective [Unknown]
  - Product use in unapproved indication [Unknown]
  - Product quality issue [Unknown]
